FAERS Safety Report 6625214-1 (Version None)
Quarter: 2010Q1

REPORT INFORMATION
  Report Type: 
  Country: None (occurrence: None)
  Receive Date: 20100310
  Receipt Date: 20090910
  Transmission Date: 20100710
  Serious: Yes (Hospitalization)
  Sender: FDA-Public Use
  Company Number: US-BIOGENIDEC-2009BI028834

PATIENT
  Age: 40 Year
  Sex: Female
  Weight: 90 kg

DRUGS (4)
  1. AVONEX [Suspect]
     Indication: MULTIPLE SCLEROSIS
     Route: 030
     Dates: start: 19960101, end: 20030101
  2. AVONEX [Suspect]
     Route: 030
     Dates: start: 20030101, end: 20030101
  3. AVONEX [Suspect]
     Route: 030
     Dates: start: 20030101, end: 20071201
  4. AVONEX [Suspect]
     Route: 030
     Dates: start: 20090101

REACTIONS (13)
  - BALANCE DISORDER [None]
  - CONCUSSION [None]
  - DECREASED APPETITE [None]
  - FALL [None]
  - GENERAL SYMPTOM [None]
  - LOSS OF CONTROL OF LEGS [None]
  - MULTIPLE SCLEROSIS [None]
  - MULTIPLE SCLEROSIS RELAPSE [None]
  - MYALGIA [None]
  - NEUROPATHY PERIPHERAL [None]
  - PYREXIA [None]
  - SKIN ULCER [None]
  - WEIGHT INCREASED [None]
